FAERS Safety Report 4984336-1 (Version None)
Quarter: 2006Q2

REPORT INFORMATION
  Report Type: 
  Country: None (occurrence: None)
  Receive Date: 20060420
  Receipt Date: 20060412
  Transmission Date: 20061013
  Serious: Yes (Hospitalization)
  Sender: FDA-Public Use
  Company Number: 224067

PATIENT
  Age: 39 Year
  Sex: Male

DRUGS (9)
  1. METALYSE (TENECTEPLASE) PWDR + SOLVENT, INJECTION SOLN, 50MG [Suspect]
     Indication: MYOCARDIAL INFARCTION
     Dosage: INTRAVENOUS
     Route: 042
     Dates: start: 20060131, end: 20060131
  2. REOPRO [Concomitant]
  3. BISOPROLOL FUMARATE [Concomitant]
  4. PLAVIX [Concomitant]
  5. LYSINE ACETYLSALICYLATE (ASPIRIN DL-LYSINE) [Concomitant]
  6. OMEPRAZOLE [Concomitant]
  7. ATORVASTATIN (ATORVASTATIN CALCIUM) [Concomitant]
  8. RAMIPRIL [Concomitant]
  9. NICOTINE [Concomitant]

REACTIONS (2)
  - EPISTAXIS [None]
  - THROMBOCYTOPENIC PURPURA [None]
